FAERS Safety Report 11016767 (Version 2)
Quarter: 2015Q2

REPORT INFORMATION
  Report Type: Spontaneous
  Country: US (occurrence: US)
  Receive Date: 20150412
  Receipt Date: 20150525
  Transmission Date: 20150821
  Serious: No
  Sender: FDA-Public Use
  Company Number: US-JNJFOC-20150302073

PATIENT
  Age: 20 Year
  Sex: Female
  Weight: 72.12 kg

DRUGS (4)
  1. NATURES BOUNTY HAIR SKIN AND NAILS [Concomitant]
     Indication: NAIL DISORDER
     Route: 065
     Dates: start: 201502
  2. ORTHO EVRA [Suspect]
     Active Substance: ETHINYL ESTRADIOL\NORELGESTROMIN
     Indication: CONTRACEPTION
     Route: 062
  3. NATURES BOUNTY HAIR SKIN AND NAILS [Concomitant]
     Indication: UNEVALUABLE EVENT
     Route: 065
     Dates: start: 201502
  4. NATURES BOUNTY HAIR SKIN AND NAILS [Concomitant]
     Indication: SKIN DISORDER
     Route: 065
     Dates: start: 201502

REACTIONS (1)
  - Metrorrhagia [Not Recovered/Not Resolved]

NARRATIVE: CASE EVENT DATE: 20150228
